FAERS Safety Report 15192466 (Version 2)
Quarter: 2018Q4

REPORT INFORMATION
  Report Type: Spontaneous
  Country: US (occurrence: US)
  Receive Date: 20180725
  Receipt Date: 20181114
  Transmission Date: 20190204
  Serious: No
  Sender: FDA-Public Use
  Company Number: US-B.I. PHARMACEUTICALS,INC./RIDGEFIELD-2018-BI-037766

PATIENT
  Age: 70 Year
  Sex: Male
  Weight: 79 kg

DRUGS (6)
  1. ALLOPURINOL. [Concomitant]
     Active Substance: ALLOPURINOL
     Dosage: ONCE DAILY;  FORM STRENGTH: 100 MG; FORMULATION: TABLET
     Route: 048
     Dates: start: 2015
  2. OFEV [Suspect]
     Active Substance: NINTEDANIB
     Indication: IDIOPATHIC PULMONARY FIBROSIS
     Dosage: BID;FORM STRENGTH: 150 MG; FORMULATION: CAPSULE ACTION(S) TAKEN WITH PRODUCT: DOSE NOT CHANGED
     Route: 048
     Dates: start: 20180421
  3. ALLEGRA [Concomitant]
     Active Substance: FEXOFENADINE HYDROCHLORIDE
     Indication: FOOD ALLERGY
     Dosage: ONCE DAILY;  FORM STRENGTH: 180 MG; FORMULATION: TABLET
     Route: 048
     Dates: start: 2016
  4. ASPIRIN. [Concomitant]
     Active Substance: ASPIRIN
     Indication: CORONARY ARTERIAL STENT INSERTION
     Dosage: ONCE DAILY ;  FORM STRENGTH: 81 MG; FORMULATION: TABLET
     Route: 048
     Dates: start: 2017
  5. ALLOPURINOL. [Concomitant]
     Active Substance: ALLOPURINOL
     Indication: GOUT
     Dosage: ONCE DAILY;  FORM STRENGTH: 300MG; FORMULATION: TABLET
     Route: 048
     Dates: start: 2015
  6. RANITIDINE. [Concomitant]
     Active Substance: RANITIDINE
     Indication: FOOD ALLERGY
     Dosage: BID;  FORM STRENGTH: 150 MG; FORMULATION: TABLET
     Route: 048
     Dates: start: 2016

REACTIONS (8)
  - Abdominal pain [Recovered/Resolved]
  - Diverticulitis [Not Recovered/Not Resolved]
  - Nausea [Not Recovered/Not Resolved]
  - Weight decreased [Not Recovered/Not Resolved]
  - Hepatic enzyme increased [Not Recovered/Not Resolved]
  - Asthenia [Not Recovered/Not Resolved]
  - Decreased appetite [Not Recovered/Not Resolved]
  - Arthritis [Not Recovered/Not Resolved]

NARRATIVE: CASE EVENT DATE: 20180719
